FAERS Safety Report 9743334 (Version 1)
Quarter: 2013Q4

REPORT INFORMATION
  Report Type: Spontaneous
  Country: US (occurrence: US)
  Receive Date: 20131210
  Receipt Date: 20131210
  Transmission Date: 20140711
  Serious: Yes (Other)
  Sender: FDA-Public Use
  Company Number: US-B.I. PHARMACEUTICALS,INC./RIDGEFIELD-2013-BI-41163GD

PATIENT
  Sex: Female

DRUGS (9)
  1. CLONIDINE [Suspect]
     Indication: HYPERTENSION
     Dosage: 0.2 MG
     Route: 048
  2. AMLODIPINE [Suspect]
     Indication: HYPERTENSION
     Dosage: 10 MG
     Route: 048
  3. LISINOPRIL [Suspect]
     Indication: HYPERTENSION
     Dosage: 5 MG
     Route: 048
  4. FUROSEMIDE [Suspect]
     Indication: HYPERTENSION
     Dosage: 80 MG
     Route: 048
  5. ATENOLOL [Suspect]
     Indication: HYPERTENSION
     Dosage: 50 MG
     Route: 048
  6. EPOETIN ALFA [Concomitant]
     Indication: RENAL FAILURE CHRONIC
     Dosage: 285.7143 U
  7. CALCITRIOL [Concomitant]
     Indication: RENAL FAILURE CHRONIC
     Dosage: 0.25 MCG
  8. SODIUM BICARBONATE [Concomitant]
     Indication: RENAL FAILURE CHRONIC
     Dosage: 2600 MG
  9. CALCIUM ACETATE [Concomitant]
     Indication: RENAL FAILURE CHRONIC
     Dosage: 667 MG
     Route: 048

REACTIONS (7)
  - Transient ischaemic attack [Recovered/Resolved]
  - Mental disorder [Unknown]
  - Headache [Unknown]
  - Presyncope [Unknown]
  - Vertigo [Unknown]
  - Ataxia [Unknown]
  - Fall [Unknown]
